FAERS Safety Report 5915797-9 (Version None)
Quarter: 2008Q4

REPORT INFORMATION
  Report Type: 
  Country: None (occurrence: None)
  Receive Date: 20081010
  Receipt Date: 20080930
  Transmission Date: 20090506
  Serious: Yes (Other)
  Sender: FDA-Public Use
  Company Number: US-PFIZER INC-2008069672

PATIENT
  Sex: Female
  Weight: 68.5 kg

DRUGS (4)
  1. CHANTIX [Suspect]
     Indication: SMOKING CESSATION THERAPY
     Dates: start: 20080701, end: 20080801
  2. REMICADE [Concomitant]
  3. VITAMIN B-12 [Concomitant]
  4. EXCEDRIN (MIGRAINE) [Concomitant]

REACTIONS (7)
  - DYSPNOEA [None]
  - HEADACHE [None]
  - INCREASED UPPER AIRWAY SECRETION [None]
  - OROPHARYNGEAL SPASM [None]
  - RESPIRATORY ARREST [None]
  - RHINORRHOEA [None]
  - SALIVA ALTERED [None]
